FAERS Safety Report 24582249 (Version 6)
Quarter: 2024Q4

REPORT INFORMATION
  Report Type: Spontaneous
  Country: AT (occurrence: AT)
  Receive Date: 20241105
  Receipt Date: 20241216
  Transmission Date: 20250115
  Serious: Yes (Life-Threatening, Other)
  Sender: CELLTRION
  Company Number: AT-ROCHE-3548923

PATIENT

DRUGS (47)
  1. BEVACIZUMAB [Suspect]
     Active Substance: BEVACIZUMAB
     Indication: Adenocarcinoma
     Dosage: 5 MG/KG, EVERY 14 DAYS
     Route: 065
     Dates: start: 202202
  2. BEVACIZUMAB [Suspect]
     Active Substance: BEVACIZUMAB
     Indication: Colorectal cancer metastatic
     Dosage: UNK
     Route: 065
     Dates: start: 202101
  3. BEVACIZUMAB [Suspect]
     Active Substance: BEVACIZUMAB
     Indication: Adenocarcinoma of colon
     Dosage: IN MAY, TREATMENT WAS DEESCALATED TO CAPECITABINE + BEVACIZUMAB AS MAINTENANCE THERAPY
     Route: 065
     Dates: start: 202105
  4. BEVACIZUMAB [Suspect]
     Active Substance: BEVACIZUMAB
     Indication: Diarrhoea
     Dosage: UNK
     Route: 065
  5. BEVACIZUMAB [Suspect]
     Active Substance: BEVACIZUMAB
     Indication: Neuropathy peripheral
     Dosage: UNK
     Route: 065
     Dates: start: 202102
  6. BEVACIZUMAB [Suspect]
     Active Substance: BEVACIZUMAB
     Dosage: (ADDITIONAL INFORMATION ON DRUG: FOLFIRI + BEVACIZUMAB REGIMEN)
     Dates: start: 202101
  7. BEVACIZUMAB [Suspect]
     Active Substance: BEVACIZUMAB
     Dosage: MAINTENANCE TREATMENT (ADDITIONAL INFORMATION ON DRUG: FOLFIRI + BEVACIZUMAB REGIMEN)
     Route: 065
     Dates: start: 202105
  8. BEVACIZUMAB [Suspect]
     Active Substance: BEVACIZUMAB
     Dosage: THERAPY RESUMED (ADDITIONAL INFORMATION ON DRUG: FOLFIRI + BEVACIZUMAB REGIMEN)
     Route: 065
     Dates: start: 202111
  9. CAPECITABINE [Suspect]
     Active Substance: CAPECITABINE
     Indication: Adenocarcinoma
     Dosage: IN MAY, TREATMENT WAS DEESCALATED TO CAPECITABINE + BEVACIZUMAB AS MAINTENANCE THERAPY
     Route: 048
     Dates: start: 202105
  10. CAPECITABINE [Suspect]
     Active Substance: CAPECITABINE
     Indication: Colorectal cancer metastatic
     Dosage: UNK
     Route: 048
  11. CAPECITABINE [Suspect]
     Active Substance: CAPECITABINE
     Indication: Adenocarcinoma of colon
     Dosage: UNK
     Route: 065
  12. FLUOROURACIL [Suspect]
     Active Substance: FLUOROURACIL
     Indication: Adenocarcinoma
     Dosage: UNK
     Route: 065
     Dates: start: 202101
  13. FLUOROURACIL [Suspect]
     Active Substance: FLUOROURACIL
     Indication: Adenocarcinoma of colon
     Dosage: UNK
     Route: 065
     Dates: start: 202201
  14. FLUOROURACIL [Suspect]
     Active Substance: FLUOROURACIL
     Indication: Diarrhoea
     Dosage: THERAPY RESUMED
     Route: 065
     Dates: start: 202111
  15. FLUOROURACIL [Suspect]
     Active Substance: FLUOROURACIL
     Indication: Neuropathy peripheral
  16. FLUOROURACIL [Suspect]
     Active Substance: FLUOROURACIL
     Indication: Colorectal cancer metastatic
  17. LEUCOVORIN [Suspect]
     Active Substance: LEUCOVORIN\LEUCOVORIN CALCIUM
     Indication: Adenocarcinoma
     Dosage: UNK
     Route: 065
     Dates: start: 202101
  18. LEUCOVORIN [Suspect]
     Active Substance: LEUCOVORIN\LEUCOVORIN CALCIUM
     Indication: Adenocarcinoma of colon
  19. LEUCOVORIN [Suspect]
     Active Substance: LEUCOVORIN\LEUCOVORIN CALCIUM
     Indication: Diarrhoea
  20. LEUCOVORIN [Suspect]
     Active Substance: LEUCOVORIN\LEUCOVORIN CALCIUM
     Indication: Neuropathy peripheral
  21. LEUCOVORIN [Suspect]
     Active Substance: LEUCOVORIN\LEUCOVORIN CALCIUM
     Indication: Colorectal cancer metastatic
  22. LEUCOVORIN CALCIUM [Suspect]
     Active Substance: LEUCOVORIN CALCIUM
     Indication: Adenocarcinoma of colon
     Dosage: THERAPY RESUMED (ADDITIONAL INFORMATION ON DRUG: FOLFIRI)
     Route: 065
     Dates: start: 202111
  23. LEUCOVORIN CALCIUM [Suspect]
     Active Substance: LEUCOVORIN CALCIUM
     Dosage: (ADDITIONAL INFORMATION ON DRUG: FOLFIRI)
     Route: 065
     Dates: start: 202101
  24. FLUOROURACIL\IRINOTECAN\LEUCOVORIN\OXALIPLATIN [Suspect]
     Active Substance: FLUOROURACIL\IRINOTECAN\LEUCOVORIN\OXALIPLATIN
     Indication: Colorectal cancer metastatic
     Dosage: UNK
     Route: 065
  25. FLUOROURACIL\IRINOTECAN\LEUCOVORIN\OXALIPLATIN [Suspect]
     Active Substance: FLUOROURACIL\IRINOTECAN\LEUCOVORIN\OXALIPLATIN
     Indication: Diarrhoea
     Dosage: UNK
     Route: 065
     Dates: start: 202101
  26. FLUOROURACIL\IRINOTECAN\LEUCOVORIN\OXALIPLATIN [Suspect]
     Active Substance: FLUOROURACIL\IRINOTECAN\LEUCOVORIN\OXALIPLATIN
     Indication: Neuropathy peripheral
  27. CAPECITABINE [Suspect]
     Active Substance: CAPECITABINE
     Indication: Adenocarcinoma of colon
     Dosage: UNK
     Route: 065
     Dates: start: 202105
  28. IRINOTECAN HYDROCHLORIDE [Suspect]
     Active Substance: IRINOTECAN HYDROCHLORIDE
     Indication: Adenocarcinoma
     Dosage: UNK
     Route: 065
     Dates: start: 202101
  29. IRINOTECAN HYDROCHLORIDE [Suspect]
     Active Substance: IRINOTECAN HYDROCHLORIDE
     Indication: Adenocarcinoma of colon
  30. IRINOTECAN HYDROCHLORIDE [Suspect]
     Active Substance: IRINOTECAN HYDROCHLORIDE
     Indication: Diarrhoea
  31. IRINOTECAN HYDROCHLORIDE [Suspect]
     Active Substance: IRINOTECAN HYDROCHLORIDE
     Indication: Neuropathy peripheral
  32. FLUOROURACIL\IRINOTECAN\LEUCOVORIN [Suspect]
     Active Substance: FLUOROURACIL\IRINOTECAN\LEUCOVORIN
     Indication: Colorectal cancer metastatic
     Route: 065
  33. OXALIPLATIN [Suspect]
     Active Substance: OXALIPLATIN
     Indication: Colorectal cancer metastatic
     Dosage: UNK
     Dates: start: 202101
  34. OXALIPLATIN [Suspect]
     Active Substance: OXALIPLATIN
     Dosage: UNK
     Dates: start: 202201
  35. IRINOTECAN [Suspect]
     Active Substance: IRINOTECAN
     Indication: Colorectal cancer metastatic
     Dosage: UNK
     Dates: start: 202101
  36. IRINOTECAN [Suspect]
     Active Substance: IRINOTECAN
     Dosage: UNK
     Dates: start: 202201
  37. IRINOTECAN [Suspect]
     Active Substance: IRINOTECAN
     Dosage: (ADDITIONAL INFORMATION ON DRUG: FOLFIRI)
     Route: 065
     Dates: start: 202101
  38. IRINOTECAN [Suspect]
     Active Substance: IRINOTECAN
     Dosage: THERAPY RESUMED (ADDITIONAL INFORMATION ON DRUG: FOLFIRI)
     Dates: start: 202111
  39. TIPIRACIL HYDROCHLORIDE\TRIFLURIDINE [Suspect]
     Active Substance: TIPIRACIL HYDROCHLORIDE\TRIFLURIDINE
     Indication: Adenocarcinoma
     Dosage: 35 MG/M, 28-DAY CYCLES
     Route: 065
     Dates: start: 202202, end: 202307
  40. TIPIRACIL HYDROCHLORIDE\TRIFLURIDINE [Suspect]
     Active Substance: TIPIRACIL HYDROCHLORIDE\TRIFLURIDINE
     Indication: Colorectal cancer metastatic
     Dosage: UNK
     Route: 065
  41. TIPIRACIL HYDROCHLORIDE\TRIFLURIDINE [Suspect]
     Active Substance: TIPIRACIL HYDROCHLORIDE\TRIFLURIDINE
     Indication: Adenocarcinoma of colon
     Dosage: 28-DAY CYCLES
     Route: 065
     Dates: start: 202307
  42. TIPIRACIL HYDROCHLORIDE\TRIFLURIDINE [Suspect]
     Active Substance: TIPIRACIL HYDROCHLORIDE\TRIFLURIDINE
     Indication: Diarrhoea
  43. TIPIRACIL HYDROCHLORIDE\TRIFLURIDINE [Suspect]
     Active Substance: TIPIRACIL HYDROCHLORIDE\TRIFLURIDINE
     Indication: Neuropathy peripheral
  44. CIPROFLOXACIN [Concomitant]
     Active Substance: CIPROFLOXACIN
     Route: 065
  45. GRANULOCYTE COLONY-STIMULATING FACTOR NOS [Concomitant]
     Active Substance: GRANULOCYTE COLONY-STIMULATING FACTOR NOS
     Route: 065
  46. CAPECITABINE [Concomitant]
     Active Substance: CAPECITABINE
  47. TIPIRACIL HYDROCHLORIDE\TRIFLURIDINE [Concomitant]
     Active Substance: TIPIRACIL HYDROCHLORIDE\TRIFLURIDINE
     Indication: Colorectal cancer metastatic
     Dosage: 28-DAY CYCLES
     Route: 065
     Dates: start: 202202, end: 202307

REACTIONS (7)
  - Neutropenia [Unknown]
  - Colorectal cancer metastatic [Unknown]
  - Neuropathy peripheral [Not Recovered/Not Resolved]
  - Disease progression [Unknown]
  - Diarrhoea [Recovered/Resolved]
  - Therapy non-responder [Unknown]
  - Intentional product use issue [Unknown]

NARRATIVE: CASE EVENT DATE: 20211101
